FAERS Safety Report 24091012 (Version 4)
Quarter: 2025Q3

REPORT INFORMATION
  Report Type: Report from Study
  Country: JP (occurrence: JP)
  Receive Date: 20240715
  Receipt Date: 20250916
  Transmission Date: 20251020
  Serious: Yes (Life-Threatening, Hospitalization, Other)
  Sender: PFIZER
  Company Number: JP-PFIZER INC-PV202400092226

PATIENT
  Age: 3 Year
  Sex: Male

DRUGS (18)
  1. SIROLIMUS [Suspect]
     Active Substance: SIROLIMUS
     Indication: Klippel-Trenaunay syndrome
     Dosage: 4 MG,1 D
     Route: 048
     Dates: start: 202111, end: 202405
  2. SIROLIMUS [Suspect]
     Active Substance: SIROLIMUS
     Indication: Lymphatic malformation
     Dosage: 3 MG,1 D
     Route: 048
     Dates: start: 20240522, end: 20240702
  3. SIROLIMUS [Suspect]
     Active Substance: SIROLIMUS
     Dosage: 1.5 MG,1 D
     Route: 048
     Dates: start: 20240702, end: 20240703
  4. SIROLIMUS [Suspect]
     Active Substance: SIROLIMUS
     Dosage: 2 MG,1 D
     Route: 048
     Dates: start: 20240722
  5. SIROLIMUS [Suspect]
     Active Substance: SIROLIMUS
     Route: 048
     Dates: start: 20240118, end: 20240521
  6. SIROLIMUS [Suspect]
     Active Substance: SIROLIMUS
     Route: 048
     Dates: start: 20240703, end: 20240902
  7. SIROLIMUS [Suspect]
     Active Substance: SIROLIMUS
     Route: 048
     Dates: start: 20240903
  8. VINCRISTINE SULFATE [Concomitant]
     Active Substance: VINCRISTINE SULFATE
     Route: 065
  9. SULFAMETHOXAZOLE\TRIMETHOPRIM [Concomitant]
     Active Substance: SULFAMETHOXAZOLE\TRIMETHOPRIM
     Route: 048
  10. DEFERASIROX [Concomitant]
     Active Substance: DEFERASIROX
     Route: 048
  11. FAMOTIDINE [Concomitant]
     Active Substance: FAMOTIDINE
     Route: 048
  12. TRANSAMIN [Concomitant]
     Active Substance: TRANEXAMIC ACID
     Route: 048
  13. CARBOCYSTEINE [Concomitant]
     Active Substance: CARBOCYSTEINE
     Route: 048
  14. MIYA-BM [Concomitant]
     Active Substance: CLOSTRIDIUM BUTYRICUM SPORES STRAIN M-55
     Route: 048
  15. HERBALS [Concomitant]
     Active Substance: HERBALS
     Route: 048
  16. HERBALS [Concomitant]
     Active Substance: HERBALS
  17. TIZANIDINE [Concomitant]
     Active Substance: TIZANIDINE
     Route: 048
  18. MOVICOL [Concomitant]
     Active Substance: POLYETHYLENE GLYCOL 3350\POTASSIUM CHLORIDE\SODIUM BICARBONATE\SODIUM CHLORIDE
     Route: 048

REACTIONS (11)
  - Extradural haematoma [Unknown]
  - Orbital haematoma [Unknown]
  - Nephrotic syndrome [Recovering/Resolving]
  - COVID-19 [Recovered/Resolved]
  - Rhinovirus infection [Recovered/Resolved]
  - Pneumonia bacterial [Recovered/Resolved]
  - Dysphagia [Unknown]
  - Drug level increased [Recovered/Resolved]
  - Wrong technique in product usage process [Unknown]
  - Off label use [Unknown]
  - Off label use [Unknown]

NARRATIVE: CASE EVENT DATE: 20211101
